FAERS Safety Report 21078795 (Version 1)
Quarter: 2022Q3

REPORT INFORMATION
  Report Type: Spontaneous
  Country: US (occurrence: US)
  Receive Date: 20220713
  Receipt Date: 20220713
  Transmission Date: 20221027
  Serious: No
  Sender: FDA-Public Use
  Company Number: US-SANOFI-01180983

PATIENT
  Age: 10 Year
  Sex: Female

DRUGS (1)
  1. DUPIXENT [Suspect]
     Active Substance: DUPILUMAB
     Indication: Dermatitis allergic
     Dosage: 200 MG, QOW
     Dates: start: 20220608

REACTIONS (3)
  - Product use in unapproved indication [Unknown]
  - Device dispensing error [Unknown]
  - Device use issue [Unknown]

NARRATIVE: CASE EVENT DATE: 20220608
